FAERS Safety Report 8224657 (Version 4)
Quarter: 2013Q2

REPORT INFORMATION
  Report Type: Report from Study
  Country: DK (occurrence: DK)
  Receive Date: 20111103
  Receipt Date: 20130611
  Transmission Date: 20140414
  Serious: Yes (Hospitalization)
  Sender: FDA-Public Use
  Company Number: DK-UCBSA-044428

PATIENT
  Age: 63 Year
  Sex: Male
  Weight: 92.7 kg

DRUGS (10)
  1. CERTOLIZUMAB PEGOL [Suspect]
     Indication: RHEUMATOID ARTHRITIS
     Route: 058
     Dates: end: 20111026
  2. CALCIUM [Concomitant]
     Indication: PROPHYLAXIS
     Route: 048
     Dates: start: 20080327
  3. D-VITAMIN [Concomitant]
     Indication: PROPHYLAXIS
     Route: 048
     Dates: start: 20080327
  4. FOLIC ACID [Concomitant]
     Indication: PROPHYLAXIS
     Dosage: AS SUFFICIENT QUANTITY
     Route: 048
     Dates: start: 20080327
  5. PREDNISOLONE [Concomitant]
     Indication: RHEUMATOID ARTHRITIS
     Route: 048
     Dates: start: 20110302, end: 2011
  6. PREDNISOLONE [Concomitant]
     Indication: RHEUMATOID ARTHRITIS
     Route: 048
     Dates: start: 20111104
  7. PARACETAMOL [Concomitant]
     Indication: RHEUMATOID ARTHRITIS
     Dosage: AS NESSECARY, AS USED: 1 G
     Route: 048
     Dates: start: 2005
  8. GADOTERIN ACID [Concomitant]
     Indication: RHEUMATOID ARTHRITIS
     Dates: start: 20111004, end: 20111004
  9. METHOTREXATE [Concomitant]
     Indication: RHEUMATOID ARTHRITIS
     Dosage: FREQUENCY: QS
     Route: 048
     Dates: start: 20110223
  10. METHOTREXATE [Concomitant]
     Indication: RHEUMATOID ARTHRITIS
     Route: 048
     Dates: start: 20080327

REACTIONS (1)
  - Splinter haemorrhages [Recovered/Resolved]
